FAERS Safety Report 7392098-6 (Version None)
Quarter: 2011Q2

REPORT INFORMATION
  Report Type: 
  Country: None (occurrence: None)
  Receive Date: 20110404
  Receipt Date: 20110325
  Transmission Date: 20111010
  Serious: Yes (Hospitalization, Disabling)
  Sender: FDA-Public Use
  Company Number: A0773180A

PATIENT
  Age: 57 Year
  Sex: Male
  Weight: 72.7 kg

DRUGS (10)
  1. AVANDIA [Suspect]
     Indication: DIABETES MELLITUS
     Dosage: 4MG TWICE PER DAY
     Route: 048
     Dates: start: 19980101, end: 20050101
  2. GLUCOTROL [Concomitant]
  3. GLUCOPHAGE [Concomitant]
  4. INSULIN [Concomitant]
  5. FAMOTIDINE [Concomitant]
  6. LIPITOR [Concomitant]
  7. DIGOXIN [Concomitant]
  8. ZESTRIL [Concomitant]
  9. PRANDIN [Concomitant]
  10. COREG [Concomitant]

REACTIONS (4)
  - MYOCARDIAL INFARCTION [None]
  - CARDIOMYOPATHY [None]
  - CORONARY ARTERY DISEASE [None]
  - ACUTE CORONARY SYNDROME [None]
